FAERS Safety Report 8960179 (Version 1)
Quarter: 2012Q4

REPORT INFORMATION
  Report Type: Report from Study
  Country: DE (occurrence: DE)
  Receive Date: 20121211
  Receipt Date: 20121211
  Transmission Date: 20130627
  Serious: Yes (Hospitalization, Other)
  Sender: FDA-Public Use
  Company Number: DE-BAXTER-2012BAX025975

PATIENT
  Age: 32 Year
  Sex: Female

DRUGS (14)
  1. ENDOXAN 1G [Suspect]
     Indication: DIFFUSE LARGE B-CELL LYMPHOMA
     Route: 065
     Dates: start: 200804
  2. ENDOXAN 1G [Suspect]
     Route: 065
     Dates: start: 200806, end: 200807
  3. RITUXIMAB [Suspect]
     Indication: DIFFUSE LARGE B-CELL LYMPHOMA
     Route: 042
     Dates: start: 200804
  4. RITUXIMAB [Suspect]
     Route: 042
     Dates: start: 200806, end: 200807
  5. RITUXIMAB [Suspect]
     Route: 042
     Dates: start: 20090325
  6. RITUXIMAB [Suspect]
     Route: 042
     Dates: start: 20091216
  7. DOXORUBICIN [Suspect]
     Indication: DIFFUSE LARGE B-CELL LYMPHOMA
     Route: 065
     Dates: start: 200804
  8. DOXORUBICIN [Suspect]
     Route: 065
     Dates: start: 200806, end: 200807
  9. VINCRISTINE [Suspect]
     Indication: DIFFUSE LARGE B-CELL LYMPHOMA
     Route: 065
     Dates: start: 200804
  10. VINCRISTINE [Suspect]
     Route: 065
     Dates: start: 200806, end: 200807
  11. PREDNISOLONE [Suspect]
     Indication: DIFFUSE LARGE B-CELL LYMPHOMA
     Route: 065
     Dates: start: 200804
  12. PREDNISOLONE [Suspect]
     Route: 065
     Dates: start: 200806, end: 200807
  13. DECORTIN [Concomitant]
     Indication: DRUG USE FOR UNKNOWN INDICATION
     Route: 048
     Dates: start: 20080417
  14. CITALON [Concomitant]
     Indication: DRUG USE FOR UNKNOWN INDICATION
     Route: 065

REACTIONS (3)
  - Febrile neutropenia [Recovered/Resolved]
  - Subclavian vein thrombosis [Unknown]
  - Gingivitis [Recovered/Resolved]
